FAERS Safety Report 16922718 (Version 1)
Quarter: 2019Q4

REPORT INFORMATION
  Report Type: Spontaneous
  Country: CA (occurrence: CA)
  Receive Date: 20191016
  Receipt Date: 20191016
  Transmission Date: 20200122
  Serious: Yes (Hospitalization)
  Sender: FDA-Public Use
  Company Number: CA-ROCHE-2442120

PATIENT
  Age: 53 Year
  Sex: Male

DRUGS (5)
  1. PROGRAF [Interacting]
     Active Substance: TACROLIMUS
     Indication: IMMUNOSUPPRESSION
     Dosage: 219.0 DAY
     Route: 048
  2. IMBRUVICA [Interacting]
     Active Substance: IBRUTINIB
     Route: 048
  3. CELLCEPT [Suspect]
     Active Substance: MYCOPHENOLATE MOFETIL\MYCOPHENOLATE MOFETIL HYDROCHLORIDE
     Indication: IMMUNOSUPPRESSION
     Route: 065
  4. PREDNISONE. [Concomitant]
     Active Substance: PREDNISONE
     Route: 065
  5. IMBRUVICA [Interacting]
     Active Substance: IBRUTINIB
     Indication: CHRONIC GRAFT VERSUS HOST DISEASE
     Dosage: THERAPY DURATION- 219.0 DAY
     Route: 048

REACTIONS (3)
  - Drug interaction [Recovering/Resolving]
  - Immunodeficiency [Recovering/Resolving]
  - Fungal infection [Recovering/Resolving]
